FAERS Safety Report 9543332 (Version 1)
Quarter: 2013Q2

REPORT INFORMATION
  Report Type: Spontaneous
  Country: US (occurrence: None)
  Receive Date: 20130524
  Receipt Date: 20130524
  Transmission Date: 20140414
  Serious: Yes (Other)
  Sender: FDA-Public Use
  Company Number: PHEH2012US025458

PATIENT
  Age: 38 Year
  Sex: Female

DRUGS (5)
  1. GILENYA (FINGOLIMOD) CAPSULE [Suspect]
     Route: 048
  2. BACLOFEN [Concomitant]
  3. CITALOPRAM [Concomitant]
  4. CIPRO (CIPROFLOXACIN HYDROCHLORIDE) [Concomitant]
  5. BACTRIM [Concomitant]

REACTIONS (1)
  - Leukopenia [None]
